FAERS Safety Report 10369305 (Version 1)
Quarter: 2014Q3

REPORT INFORMATION
  Report Type: Spontaneous
  Country: IL (occurrence: IL)
  Receive Date: 20140807
  Receipt Date: 20140807
  Transmission Date: 20150326
  Serious: Yes (Congenital Anomaly)
  Sender: FDA-Public Use
  Company Number: IL-ROXANE LABORATORIES, INC.-2014-RO-01193RO

PATIENT
  Weight: 3.55 kg

DRUGS (3)
  1. LITHIUM CARBONATE. [Suspect]
     Active Substance: LITHIUM CARBONATE
     Indication: FOETAL EXPOSURE DURING PREGNANCY
     Route: 065
  2. GITTALUN [Suspect]
     Active Substance: DOXYLAMINE SUCCINATE
     Indication: FOETAL EXPOSURE DURING PREGNANCY
     Route: 065
  3. VITAMIN B6 [Suspect]
     Active Substance: PYRIDOXINE HYDROCHLORIDE
     Indication: FOETAL EXPOSURE DURING PREGNANCY
     Route: 065

REACTIONS (4)
  - Ventricular septal defect [Unknown]
  - Transposition of the great vessels [Unknown]
  - Pulmonary artery dilatation [Unknown]
  - Atrial septal defect [Unknown]
